FAERS Safety Report 9094402 (Version 1)
Quarter: 2013Q1

REPORT INFORMATION
  Report Type: Spontaneous
  Country: US (occurrence: US)
  Receive Date: 20130219
  Receipt Date: 20130219
  Transmission Date: 20140127
  Serious: No
  Sender: FDA-Public Use
  Company Number: US-009507513-1302USA007477

PATIENT
  Sex: Female

DRUGS (8)
  1. JANUVIA [Suspect]
     Indication: TYPE 2 DIABETES MELLITUS
     Dosage: 100 MG, QD
     Route: 048
  2. LIPITOR [Concomitant]
  3. LEVOXYL [Concomitant]
  4. METFORMIN [Concomitant]
  5. GLIMEPIRIDE [Concomitant]
  6. METHOTREXATE [Concomitant]
  7. SINGULAIR [Concomitant]
  8. SYMBICORT [Concomitant]

REACTIONS (2)
  - Nausea [Unknown]
  - Pruritus [Unknown]
